FAERS Safety Report 6613877-6 (Version None)
Quarter: 2010Q1

REPORT INFORMATION
  Report Type: 
  Country: None (occurrence: None)
  Receive Date: 20100304
  Receipt Date: 20100224
  Transmission Date: 20100710
  Serious: Yes (Other)
  Sender: FDA-Public Use
  Company Number: A0846458A

PATIENT
  Sex: Female

DRUGS (4)
  1. TYKERB [Suspect]
     Dosage: 1000MG PER DAY
     Route: 048
     Dates: start: 20090827, end: 20100222
  2. XELODA [Concomitant]
     Indication: DRUG USE FOR UNKNOWN INDICATION
     Dosage: 1000MG TWICE PER DAY
     Route: 048
  3. CISPLATIN [Concomitant]
     Route: 065
  4. CISPLATIN [Concomitant]
     Route: 065

REACTIONS (3)
  - ASCITES [None]
  - DISEASE PROGRESSION [None]
  - PLEURAL EFFUSION [None]
